FAERS Safety Report 24026937 (Version 1)
Quarter: 2024Q2

REPORT INFORMATION
  Report Type: Spontaneous
  Country: GB (occurrence: GB)
  Receive Date: 20240628
  Receipt Date: 20240628
  Transmission Date: 20240716
  Serious: Yes (Other)
  Sender: FDA-Public Use
  Company Number: None

PATIENT
  Sex: Female

DRUGS (5)
  1. SERTRALINE [Suspect]
     Active Substance: SERTRALINE HYDROCHLORIDE
     Indication: Depression
     Dosage: 200MG ONCE A DAY IN THE MORNING
  2. DESOGESTREL [Concomitant]
     Active Substance: DESOGESTREL
     Indication: Heavy menstrual bleeding
  3. CHLORPHENIRAMINE MALEATE [Concomitant]
     Active Substance: CHLORPHENIRAMINE MALEATE
     Indication: Seasonal allergy
  4. IBUPROFEN [Concomitant]
     Active Substance: IBUPROFEN
     Indication: Headache
  5. KETOPROFEN [Concomitant]
     Active Substance: KETOPROFEN
     Indication: Headache

REACTIONS (11)
  - Dizziness [Not Recovered/Not Resolved]
  - Illness [Not Recovered/Not Resolved]
  - Abnormal weight gain [Not Recovered/Not Resolved]
  - Brain fog [Not Recovered/Not Resolved]
  - Fatigue [Not Recovered/Not Resolved]
  - Presyncope [Not Recovered/Not Resolved]
  - Suicidal ideation [Recovered/Resolved with Sequelae]
  - Headache [Not Recovered/Not Resolved]
  - Poor quality sleep [Not Recovered/Not Resolved]
  - Personality change [Not Recovered/Not Resolved]
  - Libido decreased [Not Recovered/Not Resolved]
